FAERS Safety Report 6141573-0 (Version None)
Quarter: 2009Q2

REPORT INFORMATION
  Report Type: 
  Country: None (occurrence: None)
  Receive Date: 20090402
  Receipt Date: 20090324
  Transmission Date: 20091009
  Serious: Yes (Death, Hospitalization)
  Sender: FDA-Public Use
  Company Number: A0770335A

PATIENT
  Age: 80 Year
  Sex: Male

DRUGS (2)
  1. WELLBUTRIN [Suspect]
  2. ANTIDEPRESSANTS [Concomitant]

REACTIONS (18)
  - BODY TEMPERATURE INCREASED [None]
  - CEREBROVASCULAR ACCIDENT [None]
  - CHOKING [None]
  - COUGH [None]
  - DIARRHOEA [None]
  - DISTURBANCE IN SOCIAL BEHAVIOUR [None]
  - DRUG INEFFECTIVE [None]
  - DYSPHAGIA [None]
  - FLUSHING [None]
  - GRAND MAL CONVULSION [None]
  - ILL-DEFINED DISORDER [None]
  - IMMOBILE [None]
  - LOSS OF CONSCIOUSNESS [None]
  - MUSCULOSKELETAL STIFFNESS [None]
  - OVERDOSE [None]
  - PAIN [None]
  - PARALYSIS [None]
  - PNEUMONIA ASPIRATION [None]
